FAERS Safety Report 18173688 (Version 1)
Quarter: 2020Q3

REPORT INFORMATION
  Report Type: Spontaneous
  Country: US (occurrence: US)
  Receive Date: 20200820
  Receipt Date: 20200820
  Transmission Date: 20201103
  Serious: No
  Sender: FDA-Public Use
  Company Number: US-DRREDDYS-USA/USA/20/0125931

PATIENT
  Sex: Male

DRUGS (1)
  1. ZENATANE [Suspect]
     Active Substance: ISOTRETINOIN
     Indication: FURUNCLE
     Dosage: RMA ISSUE DATE: 2/20/2020 4:47:58 PM STRENGTH 40 MG, RMA ISSUE DATE: 6/22/2020 5:24:59 PM STRENGTH 4
     Route: 048

REACTIONS (1)
  - Product use in unapproved indication [Unknown]
